FAERS Safety Report 4300637-4 (Version None)
Quarter: 2004Q1

REPORT INFORMATION
  Report Type: 
  Country: None (occurrence: None)
  Receive Date: 20040211
  Receipt Date: 20040126
  Transmission Date: 20041129
  Serious: No
  Sender: FDA-Public Use
  Company Number: CART-10142

PATIENT
  Age: 50 Year
  Sex: Male

DRUGS (1)
  1. CARTICEL [Suspect]
     Indication: KNEE DEFORMITY
     Dosage: A ONCE IS
     Route: 035
     Dates: start: 20000801, end: 20000801

REACTIONS (1)
  - LOOSE BODY IN JOINT [None]
